FAERS Safety Report 13348181 (Version 2)
Quarter: 2017Q2

REPORT INFORMATION
  Report Type: Spontaneous
  Country: CA (occurrence: CA)
  Receive Date: 20170318
  Receipt Date: 20170614
  Transmission Date: 20170830
  Serious: Yes (Other)
  Sender: FDA-Public Use
  Company Number: CA-AMGEN-CANSP2017038883

PATIENT
  Sex: Female

DRUGS (4)
  1. CALCIUM AND VIT D [Concomitant]
     Active Substance: CALCIUM\VITAMIN D
  2. ATIVAN [Concomitant]
     Active Substance: LORAZEPAM
     Dosage: 4 MG, QD
  3. OXYCOCET [Concomitant]
     Active Substance: ACETAMINOPHEN\OXYCODONE HYDROCHLORIDE
     Dosage: UNK
  4. PROLIA [Suspect]
     Active Substance: DENOSUMAB
     Indication: OSTEOPOROSIS
     Dosage: UNK
     Route: 065
     Dates: start: 2015

REACTIONS (3)
  - Dry skin [Unknown]
  - Skin exfoliation [Unknown]
  - Bone disorder [Unknown]
